FAERS Safety Report 13357364 (Version 1)
Quarter: 2017Q1

REPORT INFORMATION
  Report Type: Spontaneous
  Country: US (occurrence: US)
  Receive Date: 20170322
  Receipt Date: 20170322
  Transmission Date: 20170429
  Serious: No
  Sender: FDA-Public Use
  Company Number: US-ENDO PHARMACEUTICALS INC-2016-004232

PATIENT
  Age: 60 Year
  Sex: Male
  Weight: 88.53 kg

DRUGS (2)
  1. OXYCODONE HCL 15MG [Suspect]
     Active Substance: OXYCODONE HYDROCHLORIDE
     Route: 048
  2. OXYCODONE HCL 15MG [Suspect]
     Active Substance: OXYCODONE HYDROCHLORIDE
     Indication: PAIN
     Route: 048
     Dates: start: 2001

REACTIONS (5)
  - Diarrhoea [Recovered/Resolved]
  - Pain [Recovered/Resolved]
  - Pain [Not Recovered/Not Resolved]
  - Amnesia [Unknown]
  - Muscle spasms [Recovered/Resolved]

NARRATIVE: CASE EVENT DATE: 20160627
